FAERS Safety Report 6644980-2 (Version None)
Quarter: 2010Q1

REPORT INFORMATION
  Report Type: 
  Country: None (occurrence: None)
  Receive Date: 20100322
  Receipt Date: 20100311
  Transmission Date: 20100710
  Serious: Yes (Hospitalization)
  Sender: FDA-Public Use
  Company Number: PHHY2010MX12823

PATIENT
  Sex: Male

DRUGS (1)
  1. ZELMAC [Suspect]
     Indication: IRRITABLE BOWEL SYNDROME
     Dosage: 2 TABLETS (6 MG) PER DAY
     Route: 048
     Dates: start: 20100216, end: 20100226

REACTIONS (6)
  - BLOOD CREATININE INCREASED [None]
  - BLOOD UREA INCREASED [None]
  - BRONCHITIS [None]
  - CONVULSION [None]
  - COUGH [None]
  - VOMITING [None]
